FAERS Safety Report 6773988-1 (Version None)
Quarter: 2010Q2

REPORT INFORMATION
  Report Type: 
  Country: None (occurrence: None)
  Receive Date: 20100615
  Receipt Date: 20100615
  Transmission Date: 20101027
  Serious: No
  Sender: FDA-Public Use
  Company Number: None

PATIENT
  Age: 92 Year
  Sex: Male
  Weight: 71.6683 kg

DRUGS (1)
  1. CLINDAMYCIN [Suspect]
     Indication: INFECTION PROPHYLAXIS
     Dosage: FOUR 150MG ONCE 1 HR. BEFORE PO
     Route: 048
     Dates: start: 20090929, end: 20100611

REACTIONS (2)
  - DRUG DISPENSING ERROR [None]
  - PHYSICAL PRODUCT LABEL ISSUE [None]
